FAERS Safety Report 9218614 (Version 2)
Quarter: 2013Q2

REPORT INFORMATION
  Report Type: Report from Study
  Country: US (occurrence: US)
  Receive Date: 20130409
  Receipt Date: 20130430
  Transmission Date: 20140414
  Serious: Yes (Death)
  Sender: FDA-Public Use
  Company Number: US-TEVA-396902USA

PATIENT
  Sex: Male

DRUGS (6)
  1. CLOZAPINE [Suspect]
     Indication: OBSESSIVE-COMPULSIVE DISORDER
     Route: 048
  2. CLOZAPINE [Suspect]
     Indication: DEPRESSION
  3. CLOZAPINE [Suspect]
     Indication: IMPULSE-CONTROL DISORDER
  4. LIPITOR [Concomitant]
     Dosage: 10 MILLIGRAM DAILY;
  5. FLOMAX [Concomitant]
  6. ASPIRIN [Concomitant]

REACTIONS (1)
  - Death [Fatal]
